FAERS Safety Report 9405739 (Version 2)
Quarter: 2013Q3

REPORT INFORMATION
  Report Type: Report from Study
  Country: US (occurrence: GB)
  Receive Date: 20130717
  Receipt Date: 20130821
  Transmission Date: 20140515
  Serious: Yes (Other)
  Sender: FDA-Public Use
  Company Number: US-ABBOTT-13P-163-1117094-00

PATIENT
  Sex: Female

DRUGS (4)
  1. NORVIR [Suspect]
     Indication: ANTIRETROVIRAL THERAPY
     Dosage: 100 MG DAILY
     Route: 048
  2. REYATAZ [Suspect]
     Indication: ANTIRETROVIRAL THERAPY
     Dosage: 300 MG DAILY
     Route: 048
  3. EPZICOM [Suspect]
     Indication: ANTIRETROVIRAL THERAPY
     Route: 048
  4. VIREAD [Suspect]
     Indication: ANTIRETROVIRAL THERAPY
     Dosage: 245 MG DAILY
     Route: 048

REACTIONS (2)
  - Placental insufficiency [Unknown]
  - Oligohydramnios [Unknown]
